FAERS Safety Report 5383568-0 (Version None)
Quarter: 2007Q3

REPORT INFORMATION
  Report Type: 
  Country: None (occurrence: None)
  Receive Date: 20070706
  Receipt Date: 20070625
  Transmission Date: 20080115
  Serious: Yes (Other)
  Sender: FDA-Public Use
  Company Number: CHNY2007DE02218

PATIENT
  Sex: Female

DRUGS (1)
  1. NICOTINE [Suspect]
     Indication: SMOKING CESSATION THERAPY
     Dosage: SEE IMAGE
     Route: 062
     Dates: start: 20070601

REACTIONS (6)
  - CARDIOVASCULAR DISORDER [None]
  - DIZZINESS [None]
  - DRUG TOXICITY [None]
  - MALAISE [None]
  - NAUSEA [None]
  - OVERDOSE [None]
